FAERS Safety Report 10268104 (Version 1)
Quarter: 2014Q2

REPORT INFORMATION
  Report Type: Spontaneous
  Country: TR (occurrence: TR)
  Receive Date: 20140630
  Receipt Date: 20140630
  Transmission Date: 20141212
  Serious: Yes (Congenital Anomaly)
  Sender: FDA-Public Use
  Company Number: TR-NOVOPROD-414364

PATIENT
  Sex: Female
  Weight: 2.7 kg

DRUGS (2)
  1. NOVORAPID FLEXPEN [Suspect]
     Indication: GESTATIONAL DIABETES
     Dosage: 32 U
     Route: 064
     Dates: start: 20140509, end: 20140603
  2. URSOFALK [Concomitant]
     Dosage: UNK
     Route: 064
     Dates: start: 201309

REACTIONS (3)
  - Mental disorder [Not Recovered/Not Resolved]
  - Foetal exposure during pregnancy [Recovered/Resolved]
  - Premature baby [Unknown]
